FAERS Safety Report 7242179-2 (Version None)
Quarter: 2011Q1

REPORT INFORMATION
  Report Type: 
  Country: None (occurrence: None)
  Receive Date: 20110124
  Receipt Date: 20110117
  Transmission Date: 20110831
  Serious: Yes (Disabling)
  Sender: FDA-Public Use
  Company Number: JP-ABBOTT-11P-087-0699767-00

PATIENT
  Age: 80 Year
  Sex: Male

DRUGS (5)
  1. NORVASC [Concomitant]
     Indication: HYPERTENSION
     Route: 048
  2. FLIVAS [Concomitant]
     Indication: BENIGN PROSTATIC HYPERPLASIA
     Route: 048
  3. GASMOTIN [Concomitant]
     Indication: GASTRITIS
     Route: 048
  4. NEUROVITAN [Concomitant]
     Indication: HYPOVITAMINOSIS
     Route: 048
  5. LEUPLIN SR FOR INJECTION 11.25 MG [Suspect]
     Indication: PROSTATE CANCER STAGE II
     Route: 058
     Dates: start: 20070126

REACTIONS (1)
  - TREMOR [None]
